FAERS Safety Report 6454524-6 (Version None)
Quarter: 2009Q4

REPORT INFORMATION
  Report Type: 
  Country: None (occurrence: None)
  Receive Date: 20091124
  Receipt Date: 20091119
  Transmission Date: 20100525
  Serious: Yes (Death, Hospitalization, Congenital Anomaly)
  Sender: FDA-Public Use
  Company Number: FR-WYE-G04926009

PATIENT
  Sex: Male

DRUGS (1)
  1. EFFEXOR [Suspect]
     Indication: DEPRESSION
     Dosage: UNKNOWN
     Route: 064
     Dates: start: 20070101

REACTIONS (2)
  - CONGENITAL SMALL INTESTINAL ATRESIA [None]
  - INTRA-UTERINE DEATH [None]
